FAERS Safety Report 8105855-5 (Version None)
Quarter: 2012Q1

REPORT INFORMATION
  Report Type: 
  Country: None (occurrence: None)
  Receive Date: 20120202
  Receipt Date: 20120123
  Transmission Date: 20120608
  Serious: Yes (Death)
  Sender: FDA-Public Use
  Company Number: US-BIOGENIDEC-2012BI002775

PATIENT
  Age: 54 Year
  Sex: Female

DRUGS (2)
  1. TYSABRI [Suspect]
     Indication: MULTIPLE SCLEROSIS
     Route: 042
     Dates: start: 20070711, end: 20081023
  2. TYSABRI [Suspect]
     Route: 042
     Dates: start: 20110613, end: 20120112

REACTIONS (2)
  - MYOCARDIAL INFARCTION [None]
  - EPISTAXIS [None]
